FAERS Safety Report 21486827 (Version 2)
Quarter: 2022Q4

REPORT INFORMATION
  Report Type: Spontaneous
  Country: TR (occurrence: TR)
  Receive Date: 20221020
  Receipt Date: 20221107
  Transmission Date: 20230113
  Serious: Yes (Hospitalization)
  Sender: FDA-Public Use
  Company Number: TR-TEVA-2022-TR-2817545

PATIENT
  Age: 73 Year
  Sex: Male

DRUGS (4)
  1. AZACITIDINE [Suspect]
     Active Substance: AZACITIDINE
     Indication: Myelodysplastic syndrome
     Dosage: PER DAY ON DAYS 1-7
     Route: 058
  2. ELTROMBOPAG [Concomitant]
     Active Substance: ELTROMBOPAG
     Indication: Myelodysplastic syndrome
     Dosage: 50 MILLIGRAM DAILY;
     Route: 065
  3. ELTROMBOPAG [Concomitant]
     Active Substance: ELTROMBOPAG
     Dosage: 150 MILLIGRAM DAILY;
     Route: 065
  4. FILGRASTIM [Concomitant]
     Active Substance: FILGRASTIM
     Indication: Myelodysplastic syndrome
     Dosage: 48 MIU, THREE DAYS A WEEK
     Route: 065

REACTIONS (1)
  - Arthritis [Recovering/Resolving]
